FAERS Safety Report 24718141 (Version 1)
Quarter: 2024Q4

REPORT INFORMATION
  Report Type: Spontaneous
  Country: US (occurrence: None)
  Receive Date: 20241209
  Receipt Date: 20241209
  Transmission Date: 20250115
  Serious: Yes (Death, Hospitalization)
  Sender: Public
  Company Number: None

PATIENT
  Age: 59 Year
  Sex: Male

DRUGS (9)
  1. MOUNJARO [Suspect]
     Active Substance: TIRZEPATIDE
     Indication: Type 2 diabetes mellitus
     Dates: start: 20240710, end: 20241129
  2. LANTUS [Suspect]
     Active Substance: INSULIN GLARGINE
  3. PROLIXIN DECANOATE [Concomitant]
     Active Substance: FLUPHENAZINE DECANOATE
  4. METOPROLOL [Concomitant]
     Active Substance: METOPROLOL
  5. PRAZOSIN [Concomitant]
     Active Substance: PRAZOSIN
  6. GABAPENTIN [Concomitant]
     Active Substance: GABAPENTIN
  7. NORTRIPTYLINE [Concomitant]
     Active Substance: NORTRIPTYLINE
  8. SERTRALINE [Concomitant]
     Active Substance: SERTRALINE HYDROCHLORIDE
  9. VALSARTAN [Concomitant]
     Active Substance: VALSARTAN

REACTIONS (4)
  - Diabetic ketoacidosis [None]
  - Respiratory failure [None]
  - Glycosylated haemoglobin increased [None]
  - Aspiration [None]

NARRATIVE: CASE EVENT DATE: 20241123
